FAERS Safety Report 14437735 (Version 1)
Quarter: 2018Q1

REPORT INFORMATION
  Report Type: Spontaneous
  Country: US (occurrence: US)
  Receive Date: 20180125
  Receipt Date: 20180125
  Transmission Date: 20180509
  Serious: No
  Sender: FDA-Public Use
  Company Number: US-ABBVIE-17K-163-1941430-00

PATIENT

DRUGS (1)
  1. HUMIRA [Suspect]
     Active Substance: ADALIMUMAB
     Indication: PSORIASIS
     Route: 058

REACTIONS (7)
  - Depression [Unknown]
  - Skin disorder [Unknown]
  - Drug ineffective [Unknown]
  - Anxiety [Unknown]
  - Alopecia [Unknown]
  - Psoriasis [Unknown]
  - Psychiatric symptom [Unknown]
